FAERS Safety Report 9617597 (Version 1)
Quarter: 2013Q4

REPORT INFORMATION
  Report Type: Spontaneous
  Country: US (occurrence: US)
  Receive Date: 20131011
  Receipt Date: 20131011
  Transmission Date: 20140711
  Serious: No
  Sender: FDA-Public Use
  Company Number: US-PFIZER INC-2013288412

PATIENT
  Age: 8 Year
  Sex: Male
  Weight: 31.3 kg

DRUGS (1)
  1. GENOTROPIN [Suspect]
     Indication: GROWTH HORMONE DEFICIENCY
     Dosage: UNK, 1X/DAY
     Dates: start: 20131004

REACTIONS (4)
  - Headache [Unknown]
  - Nausea [Unknown]
  - Malaise [Unknown]
  - Sluggishness [Unknown]
